FAERS Safety Report 12731392 (Version 3)
Quarter: 2017Q4

REPORT INFORMATION
  Report Type: Report from Study
  Country: US (occurrence: US)
  Receive Date: 20160912
  Receipt Date: 20171114
  Transmission Date: 20180320
  Serious: Yes (Hospitalization)
  Sender: FDA-Public Use
  Company Number: US-THERATECHNOLOGIES, INC.-TH-2016-00098

PATIENT

DRUGS (7)
  1. EGRIFTA [Suspect]
     Active Substance: TESAMORELIN
     Dosage: UNK
     Dates: start: 2016, end: 201709
  2. GENVOYA [Concomitant]
     Active Substance: COBICISTAT\ELVITEGRAVIR\EMTRICITABINE\TENOFOVIR ALAFENAMIDE FUMARATE
     Dosage: UNK
  3. TRULANCE [Concomitant]
     Active Substance: PLECANATIDE
     Dosage: UNK
  4. LORATADINE. [Concomitant]
     Active Substance: LORATADINE
     Dosage: UNK
  5. PRILOSEC [Concomitant]
     Active Substance: OMEPRAZOLE MAGNESIUM
     Dosage: UNK
  6. ALBUTEROL. [Concomitant]
     Active Substance: ALBUTEROL
     Dosage: UNK
  7. POTASSIUM SULFATE [Concomitant]
     Active Substance: POTASSIUM SULFATE
     Dosage: UNK

REACTIONS (4)
  - Injection site pain [Unknown]
  - Drug administration error [Unknown]
  - Drug ineffective [Not Recovered/Not Resolved]
  - Pancreatitis [Recovered/Resolved]

NARRATIVE: CASE EVENT DATE: 2016
